FAERS Safety Report 7879852-9 (Version None)
Quarter: 2011Q4

REPORT INFORMATION
  Report Type: 
  Country: None (occurrence: None)
  Receive Date: 20111101
  Receipt Date: 20111024
  Transmission Date: 20120403
  Serious: Yes (Life-Threatening, Hospitalization, Disabling)
  Sender: FDA-Public Use
  Company Number: US-CELGENEUS-163-21880-11070360

PATIENT
  Age: 65 Year
  Sex: Female
  Weight: 90.8 kg

DRUGS (16)
  1. TRICORE [Concomitant]
     Route: 065
  2. PRAVASTATIN [Concomitant]
     Route: 065
  3. REVLIMID [Suspect]
     Indication: MULTIPLE MYELOMA
     Dosage: 25 MILLIGRAM
     Route: 048
     Dates: start: 20101220, end: 20110609
  4. WARFARIN [Concomitant]
     Route: 065
  5. BETASERON [Concomitant]
     Route: 065
  6. ALLOPURINOL [Concomitant]
     Route: 065
  7. METFORMIN HCL [Concomitant]
     Route: 065
  8. ASPIRIN [Concomitant]
     Route: 065
  9. VELCADE [Suspect]
     Indication: MULTIPLE MYELOMA
     Dosage: 1.9 MILLIGRAM
     Route: 041
     Dates: start: 20101212, end: 20110602
  10. DEXAMETHASONE [Suspect]
     Indication: MULTIPLE MYELOMA
     Dosage: 20 MILLIGRAM
     Route: 048
     Dates: start: 20101218, end: 20110602
  11. DOXEPIN [Concomitant]
     Route: 065
  12. VITAMIN D [Concomitant]
     Route: 065
  13. LOTREL [Concomitant]
     Route: 065
  14. HEOCYTE [Concomitant]
     Route: 065
  15. ACYCLOVIR [Concomitant]
     Route: 065
  16. COREG [Concomitant]
     Route: 065

REACTIONS (10)
  - ASTHENIA [None]
  - RESPIRATORY FAILURE [None]
  - URINARY TRACT INFECTION ENTEROCOCCAL [None]
  - FEBRILE NEUTROPENIA [None]
  - DYSPNOEA [None]
  - PNEUMONIA [None]
  - RENAL TUBULAR NECROSIS [None]
  - ATRIAL FIBRILLATION [None]
  - RENAL FAILURE [None]
  - GASTROINTESTINAL HAEMORRHAGE [None]
